FAERS Safety Report 21458340 (Version 1)
Quarter: 2022Q4

REPORT INFORMATION
  Report Type: Spontaneous
  Country: US (occurrence: US)
  Receive Date: 20221014
  Receipt Date: 20221014
  Transmission Date: 20230113
  Serious: Yes (Other)
  Sender: FDA-Public Use
  Company Number: US-PFIZER INC-PV202200080029

PATIENT
  Age: 25 Year
  Sex: Female

DRUGS (1)
  1. XELJANZ [Suspect]
     Active Substance: TOFACITINIB CITRATE
     Dosage: 10 MG TAKE 1 TABLET ONCE A DAY AS DIRECTED
     Route: 048

REACTIONS (3)
  - Inflammatory bowel disease [Unknown]
  - Irritable bowel syndrome [Unknown]
  - Faecal calprotectin abnormal [Unknown]
